FAERS Safety Report 7979387-9 (Version None)
Quarter: 2011Q4

REPORT INFORMATION
  Report Type: 
  Country: None (occurrence: None)
  Receive Date: 20111214
  Receipt Date: 20111014
  Transmission Date: 20120403
  Serious: No
  Sender: FDA-Public Use
  Company Number: US-GLAXOSMITHKLINE-A0949084A

PATIENT
  Age: 66 Year
  Sex: Male

DRUGS (2)
  1. NICORETTE (MINT) [Suspect]
     Indication: EX-TOBACCO USER
  2. NICORETTE [Suspect]
     Indication: EX-TOBACCO USER

REACTIONS (3)
  - THROAT IRRITATION [None]
  - DRUG ADMINISTRATION ERROR [None]
  - APHONIA [None]
